FAERS Safety Report 17517136 (Version 1)
Quarter: 2020Q1

REPORT INFORMATION
  Report Type: Report from Study
  Country: NL (occurrence: NL)
  Receive Date: 20200309
  Receipt Date: 20200309
  Transmission Date: 20200409
  Serious: Yes (Other)
  Sender: FDA-Public Use
  Company Number: NVSC2020NL064495

PATIENT
  Sex: Male

DRUGS (3)
  1. ZOMETA [Suspect]
     Active Substance: ZOLEDRONIC ACID
     Dosage: UNK
     Route: 065
     Dates: start: 20190911
  2. ZOMETA [Suspect]
     Active Substance: ZOLEDRONIC ACID
     Indication: PROSTATE CANCER METASTATIC
     Dosage: 4 MG/ 100 ML, QMO
     Route: 042
  3. ZOMETA [Suspect]
     Active Substance: ZOLEDRONIC ACID
     Dosage: UNK
     Route: 065
     Dates: start: 20200205

REACTIONS (1)
  - Ascites [Not Recovered/Not Resolved]
